FAERS Safety Report 19202167 (Version 4)
Quarter: 2022Q1

REPORT INFORMATION
  Report Type: Report from Study
  Country: BR (occurrence: BR)
  Receive Date: 20210430
  Receipt Date: 20220308
  Transmission Date: 20220423
  Serious: Yes (Other)
  Sender: FDA-Public Use
  Company Number: BR-TAKEDA-2021TUS027261

PATIENT
  Age: 17 Year
  Sex: Male

DRUGS (1)
  1. HEMO-8R [Suspect]
     Active Substance: ANTIHEMOPHILIC FACTOR, HUMAN RECOMBINANT
     Indication: Factor VIII deficiency
     Dosage: 2000 INTERNATIONAL UNIT, 3/WEEK
     Route: 042

REACTIONS (2)
  - Haemarthrosis [Unknown]
  - Weight increased [Unknown]

NARRATIVE: CASE EVENT DATE: 20210424
